FAERS Safety Report 4611155-8 (Version None)
Quarter: 2005Q1

REPORT INFORMATION
  Report Type: 
  Country: None (occurrence: None)
  Receive Date: 20050317
  Receipt Date: 20050311
  Transmission Date: 20050727
  Serious: Yes (Other)
  Sender: FDA-Public Use
  Company Number: PHFR2005GB01199

PATIENT
  Age: 15 Year
  Sex: Male

DRUGS (5)
  1. ADRENALINE [Suspect]
     Dosage: 1/80000
  2. LIGNOCAINE [Suspect]
     Dosage: 2%
  3. PREDNISOLONE [Concomitant]
  4. SODIUM CROMOGLICATE [Concomitant]
  5. RITALIN [Suspect]
     Indication: ATTENTION DEFICIT/HYPERACTIVITY DISORDER

REACTIONS (4)
  - CHOKING [None]
  - DYSPNOEA [None]
  - MALAISE [None]
  - SHOCK [None]
